FAERS Safety Report 19475875 (Version 2)
Quarter: 2021Q3

REPORT INFORMATION
  Report Type: Report from Study
  Country: US (occurrence: US)
  Receive Date: 20210630
  Receipt Date: 20210714
  Transmission Date: 20211014
  Serious: Yes (Hospitalization)
  Sender: FDA-Public Use
  Company Number: US-BAUSCH-BL-2021-004910

PATIENT
  Age: 70 Year
  Sex: Male
  Weight: 54.48 kg

DRUGS (2)
  1. XIFAXAN [Suspect]
     Active Substance: RIFAXIMIN
     Indication: HEPATIC CIRRHOSIS
     Dosage: STARTED ABOUT 10?12 MONTHS AGO
     Route: 048
     Dates: start: 2020, end: 2021
  2. XIFAXAN [Suspect]
     Active Substance: RIFAXIMIN
     Indication: HEPATIC ENCEPHALOPATHY
     Dosage: APPROXIMATELY 5 DAYS AGO
     Route: 048
     Dates: start: 2021

REACTIONS (4)
  - Product dose omission issue [Unknown]
  - Product dose omission in error [Unknown]
  - Hepatic cirrhosis [Unknown]
  - Inappropriate schedule of product administration [Unknown]

NARRATIVE: CASE EVENT DATE: 202101
